FAERS Safety Report 9998589 (Version 1)
Quarter: 2014Q1

REPORT INFORMATION
  Report Type: Spontaneous
  Country: US (occurrence: US)
  Receive Date: 20140312
  Receipt Date: 20140312
  Transmission Date: 20141002
  Serious: No
  Sender: FDA-Public Use
  Company Number: US-BIOGENIDEC-2014BI018987

PATIENT
  Sex: Female

DRUGS (8)
  1. TECFIDERA [Suspect]
     Indication: MULTIPLE SCLEROSIS
     Route: 048
     Dates: start: 20130711, end: 20130717
  2. TECFIDERA [Suspect]
     Indication: MULTIPLE SCLEROSIS
     Route: 048
     Dates: start: 20130718
  3. SYNTHROID [Concomitant]
  4. IRON [Concomitant]
  5. VITAMIN D3 [Concomitant]
  6. CALCIUM [Concomitant]
  7. GABAPENTIN [Concomitant]
  8. ACETAMINOPHEN [Concomitant]

REACTIONS (1)
  - Sensation of heaviness [Unknown]
